FAERS Safety Report 13100550 (Version 1)
Quarter: 2017Q1

REPORT INFORMATION
  Report Type: Spontaneous
  Country: US (occurrence: US)
  Receive Date: 20170110
  Receipt Date: 20170110
  Transmission Date: 20170428
  Serious: Yes (Hospitalization)
  Sender: FDA-Public Use
  Company Number: US-ASTELLAS-2017US000252

PATIENT
  Age: 74 Year
  Sex: Female

DRUGS (8)
  1. VANCOMYCIN [Concomitant]
     Active Substance: VANCOMYCIN
     Indication: PERIORBITAL OEDEMA
     Dosage: UNK UNK, UNKNOWN FREQ.
     Route: 042
  2. AMPHOTERICIN B, LIPOSOME [Concomitant]
     Active Substance: AMPHOTERICIN B
     Indication: INFECTION PROPHYLAXIS
     Dosage: UNK UNK, UNKNOWN FREQ.
     Route: 065
  3. MEROPENEM. [Concomitant]
     Active Substance: MEROPENEM
     Indication: ORBITAL INFECTION
  4. CLINDAMYCIN. [Concomitant]
     Active Substance: CLINDAMYCIN
     Indication: SINUSITIS
     Dosage: UNK UNK, UNKNOWN FREQ.
     Route: 048
  5. VANCOMYCIN [Concomitant]
     Active Substance: VANCOMYCIN
     Indication: ERYTHEMA
  6. MEROPENEM. [Concomitant]
     Active Substance: MEROPENEM
     Indication: SINUSITIS
     Dosage: UNK UNK, UNKNOWN FREQ.
     Route: 065
  7. VORICONAZOLE. [Concomitant]
     Active Substance: VORICONAZOLE
     Indication: PRODUCT USED FOR UNKNOWN INDICATION
     Dosage: UNK UNK, UNKNOWN FREQ.
     Route: 065
  8. ISAVUCONAZOLE [Suspect]
     Active Substance: ISAVUCONAZOLE
     Indication: FUNGAL INFECTION
     Dosage: UNK UNK, UNKNOWN FREQ.
     Route: 048

REACTIONS (4)
  - Osteolysis [Unknown]
  - Fungal infection [Unknown]
  - Drug ineffective [Unknown]
  - Mass [Not Recovered/Not Resolved]
